FAERS Safety Report 23150535 (Version 1)
Quarter: 2023Q4

REPORT INFORMATION
  Report Type: Spontaneous
  Country: FI (occurrence: FI)
  Receive Date: 20231106
  Receipt Date: 20231106
  Transmission Date: 20240110
  Serious: No
  Sender: FDA-Public Use
  Company Number: FI-SCALL-2023-FI-067283

PATIENT
  Sex: Male

DRUGS (1)
  1. DUTASTERIDE [Suspect]
     Active Substance: DUTASTERIDE
     Indication: Micturition disorder
     Route: 048
     Dates: start: 2008

REACTIONS (1)
  - Prostatic specific antigen increased [Unknown]
